FAERS Safety Report 9800818 (Version 2)
Quarter: 2014Q1

REPORT INFORMATION
  Report Type: Spontaneous
  Country: US (occurrence: US)
  Receive Date: 20140107
  Receipt Date: 20140120
  Transmission Date: 20141002
  Serious: Yes (Hospitalization)
  Sender: FDA-Public Use
  Company Number: US-BAYER-2014-002024

PATIENT
  Age: 23 Year
  Sex: Female

DRUGS (14)
  1. OCELLA [Suspect]
  2. GIANVI [Suspect]
  3. NASONEX [Concomitant]
     Dosage: 50 MCG
  4. PROVENTIL HFA [Concomitant]
     Dosage: 90 MCG
  5. MELOXICAM [Concomitant]
     Dosage: 15 MG, DAILY
     Dates: start: 20121231
  6. PREDNISONE [Concomitant]
     Dosage: 4 MG, UNK
     Dates: start: 20121231
  7. TYLENOL W/CODEINE NO. 3 [Concomitant]
     Dosage: UNK, EVERY 4 HOURS AS NEEDED
     Dates: start: 20121231
  8. AUGMENTIN [Concomitant]
     Dosage: UNK, EVERY 12 HOURS
     Dates: start: 20121231
  9. CLARITIN [Concomitant]
     Dosage: 10 MG, UNK
     Dates: start: 20121231
  10. LEVAQUIN [Concomitant]
  11. MOTRIN [Concomitant]
  12. PEPCID [Concomitant]
  13. YAZ [Suspect]
     Dosage: UNK
  14. YASMIN [Suspect]

REACTIONS (5)
  - Pulmonary embolism [None]
  - Injury [None]
  - Pain [None]
  - Emotional distress [None]
  - Pain [None]
